FAERS Safety Report 10266479 (Version 1)
Quarter: 2014Q2

REPORT INFORMATION
  Report Type: Spontaneous
  Country: US (occurrence: US)
  Receive Date: 20140629
  Receipt Date: 20140629
  Transmission Date: 20141212
  Serious: No
  Sender: FDA-Public Use
  Company Number: US-ASTRAZENECA-2014SE44605

PATIENT
  Age: 77 Year
  Sex: Female
  Weight: 48.1 kg

DRUGS (4)
  1. SYMBICORT [Suspect]
     Indication: CHRONIC OBSTRUCTIVE PULMONARY DISEASE
     Dosage: 160/4.5 1 PUFF TWO TIMES A DAY
     Route: 055
  2. CRANBERRY PILL [Concomitant]
     Indication: URINARY TRACT DISORDER
  3. LIALVA [Concomitant]
     Indication: GASTRIC DISORDER
  4. VITAMIN D [Concomitant]
     Indication: VITAMIN SUPPLEMENTATION

REACTIONS (8)
  - Weight decreased [Unknown]
  - Decreased appetite [Unknown]
  - Body height decreased [Unknown]
  - Feeling abnormal [Unknown]
  - Confusional state [Not Recovered/Not Resolved]
  - Off label use [Unknown]
  - Device misuse [Unknown]
  - Drug dose omission [Not Recovered/Not Resolved]
